FAERS Safety Report 7653077-4 (Version None)
Quarter: 2011Q3

REPORT INFORMATION
  Report Type: 
  Country: None (occurrence: None)
  Receive Date: 20110728
  Receipt Date: 20110713
  Transmission Date: 20111222
  Serious: Yes (Hospitalization, Other)
  Sender: FDA-Public Use
  Company Number: 2007AL005007

PATIENT
  Sex: Female
  Weight: 2.23 kg

DRUGS (4)
  1. FORMOTEROL FUMARATE [Concomitant]
  2. FLUOXETINE [Suspect]
     Indication: MATERNAL EXPOSURE DURING PREGNANCY
     Dosage: 10 MG;TRPL
     Route: 064
  3. ALBUTEROL [Concomitant]
  4. BUDESONIDE [Concomitant]

REACTIONS (3)
  - SEPSIS NEONATAL [None]
  - SMALL FOR DATES BABY [None]
  - MATERNAL DRUGS AFFECTING FOETUS [None]
